FAERS Safety Report 6293309-0 (Version None)
Quarter: 2009Q3

REPORT INFORMATION
  Report Type: 
  Country: None (occurrence: None)
  Receive Date: 20090731
  Receipt Date: 20090724
  Transmission Date: 20100115
  Serious: Yes (Hospitalization)
  Sender: FDA-Public Use
  Company Number: IT-GENENTECH-287676

PATIENT
  Sex: Female

DRUGS (1)
  1. HERCEPTIN [Suspect]
     Indication: BREAST CANCER
     Dosage: 320 UNK, UNK
     Route: 042
     Dates: start: 20090513, end: 20090625

REACTIONS (6)
  - DYSPNOEA [None]
  - EJECTION FRACTION DECREASED [None]
  - MITRAL VALVE DISEASE [None]
  - ORTHOPNOEA [None]
  - PLEURAL EFFUSION [None]
  - TACHYCARDIA [None]
